FAERS Safety Report 4591810-9 (Version None)
Quarter: 2005Q1

REPORT INFORMATION
  Report Type: 
  Country: None (occurrence: None)
  Receive Date: 20050222
  Receipt Date: 20050209
  Transmission Date: 20050727
  Serious: Yes (Other)
  Sender: FDA-Public Use
  Company Number: 2005027751

PATIENT
  Age: 24 Year
  Sex: Male
  Weight: 68.0396 kg

DRUGS (2)
  1. BENADRYL [Suspect]
     Indication: DRUG ABUSER
     Dosage: ORAL
     Route: 048
     Dates: start: 20050208, end: 20050208
  2. ETHANOL (ETHANOL) [Suspect]
     Indication: DRUG ABUSER
     Dosage: ORAL
     Route: 048

REACTIONS (4)
  - ALCOHOL USE [None]
  - INCOHERENT [None]
  - SOMNOLENCE [None]
  - UNEVALUABLE EVENT [None]
